FAERS Safety Report 9763125 (Version 1)
Quarter: 2013Q4

REPORT INFORMATION
  Report Type: Report from Study
  Country: MX (occurrence: MX)
  Receive Date: 20131216
  Receipt Date: 20131216
  Transmission Date: 20140711
  Serious: Yes (Death)
  Sender: FDA-Public Use
  Company Number: PHHY2013MX146465

PATIENT
  Age: 72 Year
  Sex: Male

DRUGS (2)
  1. EXFORGE HCT [Suspect]
     Indication: HYPERTENSION
     Dosage: 1 DF, (320 MG VALS, 10 MG AML AND 25 MG HYDR)
     Route: 048
     Dates: start: 201308
  2. MAVIGLIN [Concomitant]
     Indication: BLOOD GLUCOSE ABNORMAL
     Dosage: 1, DAILY
     Dates: start: 201212

REACTIONS (1)
  - Renal failure [Fatal]
